FAERS Safety Report 23336753 (Version 2)
Quarter: 2024Q1

REPORT INFORMATION
  Report Type: Spontaneous
  Country: IT (occurrence: IT)
  Receive Date: 20231226
  Receipt Date: 20240105
  Transmission Date: 20240410
  Serious: Yes (Other)
  Sender: FDA-Public Use
  Company Number: IT-MINISAL02-960177

PATIENT
  Age: 14 Year
  Sex: Male

DRUGS (3)
  1. ARIPIPRAZOLE [Suspect]
     Active Substance: ARIPIPRAZOLE
     Indication: Intentional self-injury
     Dosage: 35 MILLIGRAM, 7 CPR I TAKEN IN TOTAL
     Route: 048
     Dates: start: 20231102, end: 20231102
  2. LITHIUM SULFATE [Suspect]
     Active Substance: LITHIUM SULFATE
     Indication: Drug abuse
     Dosage: 996 MILLIGRAM ( THE PATIENT HAS TAKEN 12 CPR OF MEDICATION IN TOTAL)
     Route: 048
     Dates: start: 20231002, end: 20231002
  3. LITHIUM SULFATE [Suspect]
     Active Substance: LITHIUM SULFATE
     Indication: Intentional self-injury

REACTIONS (2)
  - Drug abuse [Recovered/Resolved]
  - Toxicity to various agents [Recovered/Resolved]

NARRATIVE: CASE EVENT DATE: 20231002
